FAERS Safety Report 6130285-5 (Version None)
Quarter: 2009Q1

REPORT INFORMATION
  Report Type: 
  Country: None (occurrence: None)
  Receive Date: 20090324
  Receipt Date: 20090312
  Transmission Date: 20090719
  Serious: Yes (Hospitalization)
  Sender: FDA-Public Use
  Company Number: FR-PFIZER INC-2009183712

PATIENT

DRUGS (5)
  1. SOLU-MEDROL [Suspect]
     Indication: PREMEDICATION
     Dates: start: 20080430, end: 20090119
  2. ALL OTHER THERAPEUTIC PRODUCTS [Suspect]
     Indication: MUCOPOLYSACCHARIDOSIS II
     Dosage: 24 MG, WEEKLY
     Dates: start: 20061201
  3. ZOLOFT [Concomitant]
  4. SERETIDE [Concomitant]
  5. POLARAMINE [Concomitant]
     Dosage: 2 MG, UNK

REACTIONS (1)
  - MEDICAL DEVICE COMPLICATION [None]
